FAERS Safety Report 7470555-1 (Version None)
Quarter: 2011Q2

REPORT INFORMATION
  Report Type: 
  Country: None (occurrence: None)
  Receive Date: 20110510
  Receipt Date: 20110506
  Transmission Date: 20111010
  Serious: Yes (Life-Threatening, Other)
  Sender: FDA-Public Use
  Company Number: GB-ASTRAZENECA-2011SE26437

PATIENT
  Age: 63 Year
  Sex: Female

DRUGS (4)
  1. POTASSIUM CHLORIDE [Suspect]
     Dosage: DAILY
     Route: 048
  2. SODIUM CHLORIDE [Suspect]
     Route: 042
  3. SODIUM CHLORIDE [Suspect]
     Route: 042
  4. OMEPRAZOLE [Suspect]
     Route: 048

REACTIONS (2)
  - ACIDOSIS HYPERCHLORAEMIC [None]
  - TRACHEAL OBSTRUCTION [None]
